FAERS Safety Report 9922622 (Version 1)
Quarter: 2014Q1

REPORT INFORMATION
  Report Type: Spontaneous
  Country: US (occurrence: US)
  Receive Date: 20140225
  Receipt Date: 20140225
  Transmission Date: 20141002
  Serious: No
  Sender: FDA-Public Use
  Company Number: US-MYLANLABS-2013S1016582

PATIENT
  Age: 54 Year
  Sex: Female

DRUGS (1)
  1. DIVALPROEX SODIUM EXTENDED-RELEASE TABLETS [Suspect]
     Route: 048
     Dates: start: 201307

REACTIONS (2)
  - Rash generalised [Not Recovered/Not Resolved]
  - Swelling face [Not Recovered/Not Resolved]
